FAERS Safety Report 13116682 (Version 1)
Quarter: 2017Q1

REPORT INFORMATION
  Report Type: Report from Study
  Country: US (occurrence: US)
  Receive Date: 20170116
  Receipt Date: 20170116
  Transmission Date: 20170428
  Serious: Yes (Other)
  Sender: FDA-Public Use
  Company Number: US-AMGEN-USASL2017005512

PATIENT
  Age: 64 Year
  Sex: Female

DRUGS (1)
  1. ENBREL [Suspect]
     Active Substance: ETANERCEPT
     Indication: PSORIATIC ARTHROPATHY
     Dosage: 50 MG, QWK
     Route: 065
     Dates: start: 2007

REACTIONS (6)
  - Musculoskeletal disorder [Unknown]
  - Arthralgia [Unknown]
  - Psoriasis [Unknown]
  - Transient ischaemic attack [Unknown]
  - Gait disturbance [Unknown]
  - Eye swelling [Unknown]

NARRATIVE: CASE EVENT DATE: 201303
